FAERS Safety Report 25566295 (Version 1)
Quarter: 2025Q3

REPORT INFORMATION
  Report Type: Spontaneous
  Country: AU (occurrence: AU)
  Receive Date: 20250716
  Receipt Date: 20250716
  Transmission Date: 20251020
  Serious: Yes (Other)
  Sender: MDD OPERATIONS
  Company Number: AU-ZAMBON-202502474COR

PATIENT
  Age: 72 Year
  Sex: Female

DRUGS (1)
  1. XADAGO [Suspect]
     Active Substance: SAFINAMIDE MESYLATE
     Indication: Parkinson^s disease

REACTIONS (3)
  - Impaired gastric emptying [Unknown]
  - Constipation [Unknown]
  - Nausea [Unknown]
